FAERS Safety Report 12806612 (Version 2)
Quarter: 2016Q4

REPORT INFORMATION
  Report Type: Spontaneous
  Country: HU (occurrence: HU)
  Receive Date: 20161004
  Receipt Date: 20161017
  Transmission Date: 20170207
  Serious: Yes (Hospitalization)
  Sender: FDA-Public Use
  Company Number: HU-PFIZER INC-2016458164

PATIENT
  Sex: Male

DRUGS (1)
  1. LYRICA [Suspect]
     Active Substance: PREGABALIN
     Indication: DRUG DEPENDENCE
     Dosage: 75 MG, UNK

REACTIONS (6)
  - Loss of consciousness [Unknown]
  - Product use issue [Unknown]
  - Malaise [Unknown]
  - Panic attack [Unknown]
  - Anxiety [Unknown]
  - Weight decreased [Unknown]
